FAERS Safety Report 7970798-4 (Version None)
Quarter: 2011Q4

REPORT INFORMATION
  Report Type: 
  Country: None (occurrence: None)
  Receive Date: 20111212
  Receipt Date: 20111205
  Transmission Date: 20120403
  Serious: Yes (Other)
  Sender: FDA-Public Use
  Company Number: PHHY2011AU05658

PATIENT
  Sex: Female

DRUGS (1)
  1. ZOLEDRONOC ACID [Suspect]
     Indication: OSTEOPOROSIS
     Dosage: 5 MG,
     Dates: start: 20101116

REACTIONS (8)
  - DRY MOUTH [None]
  - INFLUENZA [None]
  - INSOMNIA [None]
  - VISUAL IMPAIRMENT [None]
  - ABNORMAL SENSATION IN EYE [None]
  - ABDOMINAL DISCOMFORT [None]
  - EYE DISORDER [None]
  - PAIN [None]
